FAERS Safety Report 23915471 (Version 1)
Quarter: 2024Q2

REPORT INFORMATION
  Report Type: Other
  Country: US (occurrence: US)
  Receive Date: 20240529
  Receipt Date: 20240529
  Transmission Date: 20240716
  Serious: Yes (Life-Threatening, Hospitalization, Other)
  Sender: FDA-Public Use
  Company Number: US-Nova Laboratories Limited-2157537

PATIENT
  Age: 8 Year
  Sex: Female

DRUGS (1)
  1. PURIXAN [Suspect]
     Active Substance: MERCAPTOPURINE

REACTIONS (4)
  - Shock [Recovering/Resolving]
  - Candida infection [Recovering/Resolving]
  - Walled-off pancreatic necrosis [Recovering/Resolving]
  - Pancreatitis necrotising [Recovered/Resolved with Sequelae]
